FAERS Safety Report 7141110-8 (Version None)
Quarter: 2010Q4

REPORT INFORMATION
  Report Type: 
  Country: None (occurrence: None)
  Receive Date: 20101207
  Receipt Date: 20101123
  Transmission Date: 20110411
  Serious: Yes (Other)
  Sender: FDA-Public Use
  Company Number: US-CELGENEUS-163-21880-10060830

PATIENT
  Sex: Female

DRUGS (5)
  1. REVLIMID [Suspect]
     Indication: MULTIPLE MYELOMA
     Route: 048
     Dates: start: 20081204
  2. REVLIMID [Suspect]
     Route: 048
     Dates: start: 20100506
  3. DECADRON [Concomitant]
     Route: 048
     Dates: start: 20081204
  4. ZOMETA [Concomitant]
     Indication: MULTIPLE MYELOMA
     Route: 051
     Dates: start: 20081211
  5. ASPIRIN [Concomitant]
     Route: 065

REACTIONS (2)
  - DIARRHOEA [None]
  - RENAL FAILURE CHRONIC [None]
